FAERS Safety Report 9112588 (Version 2)
Quarter: 2013Q2

REPORT INFORMATION
  Report Type: Report from Study
  Country: US (occurrence: US)
  Receive Date: 20130211
  Receipt Date: 20130407
  Transmission Date: 20140414
  Serious: Yes (Other)
  Sender: FDA-Public Use
  Company Number: US-TEVA-385361USA

PATIENT
  Age: 13 Year
  Sex: Female

DRUGS (1)
  1. CLARAVIS [Suspect]
     Dosage: 30 MILLIGRAM DAILY;
     Route: 048
     Dates: start: 20121206, end: 20130209

REACTIONS (6)
  - Suicide attempt [Unknown]
  - Suicidal ideation [Unknown]
  - Intentional self-injury [Unknown]
  - Anger [Unknown]
  - Depression [Unknown]
  - Mood swings [Unknown]
